FAERS Safety Report 17606592 (Version 1)
Quarter: 2020Q1

REPORT INFORMATION
  Report Type: Report from Study
  Country: BR (occurrence: BR)
  Receive Date: 20200331
  Receipt Date: 20200331
  Transmission Date: 20200409
  Serious: Yes (Hospitalization)
  Sender: FDA-Public Use
  Company Number: BR-MYLANLABS-2020M1033942

PATIENT
  Sex: Female

DRUGS (2)
  1. ZOLEDRONIC ACID [Suspect]
     Active Substance: ZOLEDRONIC ACID
     Indication: DRUG THERAPY
     Dosage: SHE HAD BEEN RECEIVING ZOLEDRONIC ACID FOR }12 MONTHS
     Route: 042
  2. AMOXICILLIN. [Concomitant]
     Active Substance: AMOXICILLIN
     Indication: ANTIBIOTIC THERAPY
     Dosage: PRE-OPERATIVE AND POST-OPERATIVE 7 DAYS
     Route: 048

REACTIONS (1)
  - Impaired healing [Recovered/Resolved]
